FAERS Safety Report 5240822-0 (Version None)
Quarter: 2007Q1

REPORT INFORMATION
  Report Type: 
  Country: None (occurrence: None)
  Receive Date: 20070219
  Receipt Date: 20070212
  Transmission Date: 20070707
  Serious: Yes (Other)
  Sender: FDA-Public Use
  Company Number: BR-GILEAD-2007-0011289

PATIENT
  Sex: Male

DRUGS (2)
  1. HEPSERA [Suspect]
     Indication: HEPATITIS B
     Dates: start: 20040101
  2. HEPSERA [Suspect]

REACTIONS (1)
  - RENAL FAILURE ACUTE [None]
